FAERS Safety Report 5721739-1 (Version None)
Quarter: 2008Q2

REPORT INFORMATION
  Report Type: 
  Country: None (occurrence: None)
  Receive Date: 20080429
  Receipt Date: 20070411
  Transmission Date: 20081010
  Serious: No
  Sender: FDA-Public Use
  Company Number: US-ASTRAZENECA-2007UW07117

PATIENT
  Age: 75 Year
  Sex: Female
  Weight: 61.2 kg

DRUGS (13)
  1. NEXIUM [Suspect]
     Indication: GASTROOESOPHAGEAL REFLUX DISEASE
     Route: 048
  2. NEXIUM [Suspect]
     Route: 048
  3. NEXIUM [Suspect]
     Route: 048
  4. ALLEGRA [Concomitant]
  5. TOPROL-XL [Concomitant]
     Route: 048
  6. TRIAMTERENE AND HYDROCHLOROTHIAZIDE [Concomitant]
  7. NASACORT [Concomitant]
  8. MAGNESIUM [Concomitant]
  9. ASPIRIN [Concomitant]
  10. FOLIC ACID [Concomitant]
  11. CALCIUM [Concomitant]
  12. VIATIN [Concomitant]
  13. EXCEDRIN (MIGRAINE) [Concomitant]

REACTIONS (1)
  - DENTAL CARIES [None]
